FAERS Safety Report 4999187-1 (Version None)
Quarter: 2006Q2

REPORT INFORMATION
  Report Type: 
  Country: None (occurrence: None)
  Receive Date: 20060511
  Receipt Date: 20060424
  Transmission Date: 20061013
  Serious: Yes (Other)
  Sender: FDA-Public Use
  Company Number: 2006UW07338

PATIENT
  Age: 65 Year
  Sex: Female

DRUGS (5)
  1. SEROQUEL [Suspect]
     Route: 048
  2. SEROQUEL [Suspect]
     Route: 048
  3. LIPITOR [Concomitant]
  4. REMINYL [Concomitant]
  5. DIDROCAL [Concomitant]

REACTIONS (3)
  - ABASIA [None]
  - DYSKINESIA [None]
  - MUSCLE RIGIDITY [None]
